FAERS Safety Report 12455306 (Version 2)
Quarter: 2016Q2

REPORT INFORMATION
  Report Type: Spontaneous
  Country: MX (occurrence: MX)
  Receive Date: 20160610
  Receipt Date: 20160630
  Transmission Date: 20160815
  Serious: Yes (Hospitalization)
  Sender: FDA-Public Use
  Company Number: MX-AMGEN-MEXSP2016072519

PATIENT
  Age: 42 Year
  Sex: Female
  Weight: 74 kg

DRUGS (8)
  1. NEULASTIM [Suspect]
     Active Substance: PEGFILGRASTIM
     Dosage: 6 MG, UNIQUE DOSE
     Route: 058
     Dates: start: 20160525
  2. 5-FU [Concomitant]
     Active Substance: FLUOROURACIL
     Dosage: 800 MG, UNIQUE DOSE
     Route: 042
     Dates: start: 20160524
  3. CYCLOPHOSPHAMIDE. [Concomitant]
     Active Substance: CYCLOPHOSPHAMIDE
     Dosage: UNK
     Route: 065
  4. NEULASTIM [Suspect]
     Active Substance: PEGFILGRASTIM
     Indication: BREAST CANCER
     Dosage: 800 MG UNIQUE DOSE
     Route: 042
     Dates: start: 20160524
  5. CYCLOPHOSPHAMIDE. [Concomitant]
     Active Substance: CYCLOPHOSPHAMIDE
     Indication: BREAST CANCER
     Dosage: 800 MG, UNIQUE DOSE
     Route: 042
     Dates: start: 20160524
  6. NEULASTIM [Suspect]
     Active Substance: PEGFILGRASTIM
     Dosage: UNK, 24 HRS AFTER CHEMO
     Route: 058
     Dates: start: 201512
  7. EPIRRUBICIN [Concomitant]
     Active Substance: EPIRUBICIN HYDROCHLORIDE
     Indication: BREAST CANCER
     Dosage: 160 MG, UNIQUE DOSE
     Route: 042
     Dates: start: 20160524
  8. EPIRRUBICIN [Concomitant]
     Active Substance: EPIRUBICIN HYDROCHLORIDE
     Dosage: UNK
     Route: 065

REACTIONS (1)
  - Drug effect decreased [Unknown]

NARRATIVE: CASE EVENT DATE: 20160526
